FAERS Safety Report 4332928-5 (Version None)
Quarter: 2004Q1

REPORT INFORMATION
  Report Type: 
  Country: None (occurrence: None)
  Receive Date: 20040330
  Receipt Date: 20040316
  Transmission Date: 20041129
  Serious: Yes (Life-Threatening)
  Sender: FDA-Public Use
  Company Number: 04P-122-0254305-00

PATIENT
  Age: 33 Year
  Sex: Female

DRUGS (4)
  1. NIMBEX [Suspect]
     Indication: INDUCTION OF ANAESTHESIA
     Dosage: INTRAVENOUS
     Route: 042
     Dates: start: 20040227, end: 20040227
  2. PENTOTHAL [Suspect]
     Indication: INDUCTION OF ANAESTHESIA
     Dosage: INTRAVENOUS
     Route: 042
     Dates: start: 20040227, end: 20040227
  3. FENTANYL [Suspect]
     Indication: INDUCTION OF ANAESTHESIA
     Dosage: INTRAVENOUS
     Route: 042
     Dates: start: 20040227, end: 20040227
  4. SUXAMETHONIUM CHLORIDE [Suspect]
     Indication: INDUCTION OF ANAESTHESIA
     Dosage: INTRAVENOUS
     Route: 042
     Dates: start: 20040227, end: 20040227

REACTIONS (3)
  - ANAPHYLACTIC REACTION [None]
  - BLOOD PRESSURE SYSTOLIC DECREASED [None]
  - CARDIAC MURMUR [None]
